FAERS Safety Report 8377036-1 (Version None)
Quarter: 2012Q2

REPORT INFORMATION
  Report Type: 
  Country: None (occurrence: None)
  Receive Date: 20120522
  Receipt Date: 20120520
  Transmission Date: 20120825
  Serious: Yes (Other)
  Sender: FDA-Public Use
  Company Number: IL-PFIZER INC-2012121545

PATIENT
  Age: 85 Year
  Sex: Female

DRUGS (1)
  1. LYRICA [Suspect]
     Dosage: 25 MG, 1X/DAY

REACTIONS (6)
  - HAEMORRHAGE [None]
  - FEELING ABNORMAL [None]
  - FALL [None]
  - DIZZINESS [None]
  - HAEMATOMA [None]
  - PYREXIA [None]
